FAERS Safety Report 6308992-0 (Version None)
Quarter: 2009Q3

REPORT INFORMATION
  Report Type: 
  Country: None (occurrence: None)
  Receive Date: 20090813
  Receipt Date: 20090810
  Transmission Date: 20100115
  Serious: Yes (Other)
  Sender: FDA-Public Use
  Company Number: US-MERCK-0201USA01183

PATIENT
  Age: 30 Year
  Sex: Male

DRUGS (6)
  1. SINGULAIR [Suspect]
     Indication: ASTHMA
     Route: 048
     Dates: start: 20011112
  2. ALLEGRA D 24 HOUR [Concomitant]
     Route: 065
     Dates: start: 20000523
  3. FLOVENT [Concomitant]
     Route: 065
  4. ADVAIR HFA [Concomitant]
     Route: 065
  5. FLONASE [Concomitant]
     Route: 065
  6. PREDNISONE [Concomitant]
     Route: 065
     Dates: start: 20011204

REACTIONS (1)
  - CYTOMEGALOVIRUS HEPATITIS [None]
